FAERS Safety Report 6105133-X (Version None)
Quarter: 2009Q1

REPORT INFORMATION
  Report Type: 
  Country: None (occurrence: None)
  Receive Date: 20090306
  Receipt Date: 20090227
  Transmission Date: 20090719
  Serious: Yes (Hospitalization)
  Sender: FDA-Public Use
  Company Number: US-BRISTOL-MYERS SQUIBB COMPANY-14525877

PATIENT
  Age: 59 Year
  Sex: Female
  Weight: 36 kg

DRUGS (3)
  1. CISPLATIN [Suspect]
     Indication: HEAD AND NECK CANCER
     Dosage: STARTED ON MAR2008(150MG) EVERY 23 WEEKS * 2
     Route: 042
     Dates: start: 20080407, end: 20080407
  2. ERBITUX [Suspect]
     Indication: HEAD AND NECK CANCER
     Dosage: STARTED ON MAR08(600MG) DAY 1;(375MG) WEEKLY*5 DOSES
     Route: 042
     Dates: start: 20080415, end: 20080415
  3. RADIATION THERAPY [Suspect]
     Indication: HEAD AND NECK CANCER
     Dosage: 1 DOSAGE FORM=70GY NO OF FRACTION:35 NO OF ELAPSED DAYS:40
     Dates: start: 20080425, end: 20080425

REACTIONS (2)
  - HAEMORRHAGE [None]
  - WOUND COMPLICATION [None]
